FAERS Safety Report 13470437 (Version 1)
Quarter: 2017Q2

REPORT INFORMATION
  Report Type: Spontaneous
  Country: US (occurrence: US)
  Receive Date: 20170421
  Receipt Date: 20170421
  Transmission Date: 20170830
  Serious: No
  Sender: FDA-Public Use
  Company Number: None

PATIENT
  Age: 60 Year
  Sex: Female

DRUGS (1)
  1. COSENTYX [Suspect]
     Active Substance: SECUKINUMAB
     Indication: PSORIASIS
     Dosage: 300MG (2 PENS) EVERY 4 WEEKS SUBCUTANEOUSLY
     Route: 058
     Dates: start: 20161227

REACTIONS (4)
  - Rhinitis [None]
  - Rash [None]
  - Choking [None]
  - Ear infection [None]

NARRATIVE: CASE EVENT DATE: 20170410
